FAERS Safety Report 18580942 (Version 2)
Quarter: 2021Q2

REPORT INFORMATION
  Report Type: Spontaneous
  Country: US (occurrence: US)
  Receive Date: 20201204
  Receipt Date: 20210630
  Transmission Date: 20210717
  Serious: Yes (Hospitalization, Other)
  Sender: FDA-Public Use
  Company Number: US-ASTRAZENECA-2020SF60598

PATIENT
  Age: 60 Year
  Sex: Male

DRUGS (47)
  1. NEXIUM [Suspect]
     Active Substance: ESOMEPRAZOLE MAGNESIUM
     Indication: DYSPEPSIA
     Route: 048
     Dates: start: 199504, end: 201712
  2. FENTANYL. [Concomitant]
     Active Substance: FENTANYL
  3. ROCALTROL [Concomitant]
     Active Substance: CALCITRIOL
  4. NEURONTIN [Concomitant]
     Active Substance: GABAPENTIN
  5. TRESIBA [Concomitant]
     Active Substance: INSULIN DEGLUDEC
  6. LANCETS [Concomitant]
     Active Substance: DEVICE
  7. FLORANEX [Concomitant]
     Active Substance: LACTOBACILLUS ACIDOPHILUS\LACTOBACILLUS DELBRUECKII SUBSP. BULGARICUS
  8. ATORVASTATIN [Concomitant]
     Active Substance: ATORVASTATIN
  9. CELEXA [Concomitant]
     Active Substance: CITALOPRAM HYDROBROMIDE
  10. PLAVIX [Concomitant]
     Active Substance: CLOPIDOGREL BISULFATE
  11. DOXYCYCLINE. [Concomitant]
     Active Substance: DOXYCYCLINE
  12. PEPCID [Concomitant]
     Active Substance: FAMOTIDINE
  13. NEXIUM 24HR [Suspect]
     Active Substance: ESOMEPRAZOLE MAGNESIUM
     Indication: DYSPEPSIA
     Dosage: 20?40 MG DAILY
     Route: 048
     Dates: start: 2014, end: 2017
  14. AMLODIPINE [Concomitant]
     Active Substance: AMLODIPINE BESYLATE
  15. MENTHOL. [Concomitant]
     Active Substance: MENTHOL
     Route: 048
     Dates: start: 2010
  16. OMEPRAZOLE. [Suspect]
     Active Substance: OMEPRAZOLE
     Indication: DYSPEPSIA
     Dosage: GENERIC
     Route: 065
  17. PREVACID [Suspect]
     Active Substance: LANSOPRAZOLE
     Indication: DYSPEPSIA
     Dosage: 20?40 MG DAILY
     Route: 065
     Dates: start: 1995, end: 2017
  18. PREVACID 24 HR [Suspect]
     Active Substance: LANSOPRAZOLE
     Indication: DYSPEPSIA
     Route: 065
     Dates: start: 199504, end: 201712
  19. MORPHINE [Concomitant]
     Active Substance: MORPHINE
  20. ASPIRIN. [Concomitant]
     Active Substance: ASPIRIN
  21. BENZONATATE. [Concomitant]
     Active Substance: BENZONATATE
  22. DEMADEX [Concomitant]
     Active Substance: TORSEMIDE
  23. MENTHOL. [Concomitant]
     Active Substance: MENTHOL
     Route: 048
     Dates: start: 2010
  24. PRILOSEC OTC [Suspect]
     Active Substance: OMEPRAZOLE MAGNESIUM
     Indication: DYSPEPSIA
     Route: 048
     Dates: start: 199504, end: 201712
  25. PREVACID [Suspect]
     Active Substance: LANSOPRAZOLE
     Indication: DYSPEPSIA
     Route: 065
     Dates: start: 199504, end: 201712
  26. TUMS [Concomitant]
     Active Substance: CALCIUM CARBONATE
  27. VENOFER [Concomitant]
     Active Substance: IRON SUCROSE
  28. RANITIDINE. [Concomitant]
     Active Substance: RANITIDINE
  29. TAGAMET [Concomitant]
     Active Substance: CIMETIDINE
  30. NEXIUM 24HR [Suspect]
     Active Substance: ESOMEPRAZOLE MAGNESIUM
     Indication: DYSPEPSIA
     Route: 048
     Dates: start: 199504, end: 201712
  31. LISINOPRIL. [Concomitant]
     Active Substance: LISINOPRIL
  32. LIDOCAINE. [Concomitant]
     Active Substance: LIDOCAINE
  33. MIRALAX [Concomitant]
     Active Substance: POLYETHYLENE GLYCOL 3350
  34. LOSARTAN. [Concomitant]
     Active Substance: LOSARTAN
  35. FERROUS SULFATE. [Concomitant]
     Active Substance: FERROUS SULFATE
  36. BYDUREON [Concomitant]
     Active Substance: EXENATIDE
  37. MENTHOL. [Concomitant]
     Active Substance: MENTHOL
     Route: 048
     Dates: start: 199504, end: 201712
  38. VITAMIN D2 [Concomitant]
     Active Substance: ERGOCALCIFEROL
  39. NOVOLOG [Concomitant]
     Active Substance: INSULIN ASPART
  40. NEXIUM [Suspect]
     Active Substance: ESOMEPRAZOLE MAGNESIUM
     Indication: DYSPEPSIA
     Dosage: 20?40 MG DAILY
     Route: 048
     Dates: start: 2001, end: 2017
  41. PRILOSEC OTC [Suspect]
     Active Substance: OMEPRAZOLE MAGNESIUM
     Indication: DYSPEPSIA
     Route: 048
     Dates: start: 2010
  42. PREVACID 24 HR [Suspect]
     Active Substance: LANSOPRAZOLE
     Indication: DYSPEPSIA
     Dosage: 20?40 MG DAILY
     Route: 065
     Dates: start: 2009, end: 2017
  43. COREG [Concomitant]
     Active Substance: CARVEDILOL
  44. EMLA [Concomitant]
     Active Substance: LIDOCAINE\PRILOCAINE
  45. POTASSIUM CHLORIDE. [Concomitant]
     Active Substance: POTASSIUM CHLORIDE
  46. OZEMPIC [Concomitant]
     Active Substance: SEMAGLUTIDE
  47. MEDROL [Concomitant]
     Active Substance: METHYLPREDNISOLONE
     Dosage: GENERIC
     Route: 065

REACTIONS (7)
  - Nephrogenic anaemia [Unknown]
  - End stage renal disease [Not Recovered/Not Resolved]
  - Hyperparathyroidism secondary [Unknown]
  - Chronic kidney disease-mineral and bone disorder [Unknown]
  - Dyspepsia [Not Recovered/Not Resolved]
  - Chronic kidney disease [Not Recovered/Not Resolved]
  - Acute kidney injury [Not Recovered/Not Resolved]

NARRATIVE: CASE EVENT DATE: 2017
